FAERS Safety Report 6230918-9 (Version None)
Quarter: 2009Q2

REPORT INFORMATION
  Report Type: 
  Country: None (occurrence: None)
  Receive Date: 20090616
  Receipt Date: 20090608
  Transmission Date: 20091009
  Serious: Yes (Other)
  Sender: FDA-Public Use
  Company Number: PHHY2009JP22833

PATIENT
  Age: 83 Year
  Sex: Male

DRUGS (6)
  1. ZOMETA [Suspect]
     Indication: METASTASES TO BONE
     Dosage: 4 MG, UNK
     Route: 042
     Dates: start: 20071107, end: 20090304
  2. ZOMETA [Suspect]
     Indication: PROSTATE CANCER
  3. TAKEPRON [Concomitant]
     Dosage: UNK
     Dates: start: 20080501
  4. DECADRON [Concomitant]
     Dosage: UNK
     Dates: start: 20081101
  5. MOBIC [Concomitant]
     Dosage: UNK
     Dates: start: 20080501
  6. LAC B [Concomitant]
     Dosage: UNK

REACTIONS (3)
  - OSTEONECROSIS [None]
  - PAIN [None]
  - PRIMARY SEQUESTRUM [None]
